FAERS Safety Report 8092294 (Version 4)
Quarter: 2013Q3

REPORT INFORMATION
  Report Type: Spontaneous
  Country: US (occurrence: US)
  Receive Date: 20110816
  Receipt Date: 20130927
  Transmission Date: 20140515
  Serious: Yes (Hospitalization)
  Sender: FDA-Public Use
  Company Number: US-GLAXOSMITHKLINE-A0940970A

PATIENT
  Age: 54 Year
  Sex: Male
  Weight: 97.7 kg

DRUGS (1)
  1. AVANDIA [Suspect]
     Indication: DIABETES MELLITUS
     Route: 048
     Dates: start: 2003, end: 20060127

REACTIONS (4)
  - Cerebrovascular accident [Unknown]
  - Myocardial ischaemia [Unknown]
  - Transient ischaemic attack [Unknown]
  - Myocardial infarction [Unknown]
